FAERS Safety Report 25448256 (Version 1)
Quarter: 2025Q2

REPORT INFORMATION
  Report Type: Spontaneous
  Country: NL (occurrence: NL)
  Receive Date: 20250617
  Receipt Date: 20250617
  Transmission Date: 20250717
  Serious: Yes (Other)
  Sender: SANOFI AVENTIS
  Company Number: None

PATIENT
  Age: 39 Year
  Sex: Male
  Weight: 82 kg

DRUGS (2)
  1. APIDRA [Suspect]
     Active Substance: INSULIN GLULISINE
     Indication: Diabetes mellitus
     Route: 065
     Dates: start: 19950101
  2. CIPROFLOXACIN [Suspect]
     Active Substance: CIPROFLOXACIN
     Indication: Urinary tract infection
     Dosage: 500 MG, Q8H
     Route: 048
     Dates: start: 20250501, end: 20250510

REACTIONS (2)
  - Depressed level of consciousness [Recovered/Resolved]
  - Confusional state [Recovered/Resolved]
